FAERS Safety Report 10706896 (Version 1)
Quarter: 2015Q1

REPORT INFORMATION
  Report Type: Spontaneous
  Country: US (occurrence: None)
  Receive Date: 20150112
  Receipt Date: 20150112
  Transmission Date: 20150721
  Serious: No
  Sender: FDA-Public Use
  Company Number: None

PATIENT
  Sex: Male

DRUGS (1)
  1. DULOXETINE 30MG ACTAVIS ELIZABETH, LLC [Suspect]
     Active Substance: DULOXETINE
     Indication: DEPRESSION
     Dosage: 1 PILL, ONCE DAILY
     Route: 048
     Dates: start: 20141227, end: 20150107

REACTIONS (5)
  - Anxiety [None]
  - Agitation [None]
  - Product quality issue [None]
  - Sleep disorder [None]
  - Product substitution issue [None]

NARRATIVE: CASE EVENT DATE: 20150109
